FAERS Safety Report 23172671 (Version 1)
Quarter: 2023Q4

REPORT INFORMATION
  Report Type: Spontaneous
  Country: GB (occurrence: GB)
  Receive Date: 20231110
  Receipt Date: 20231110
  Transmission Date: 20240110
  Serious: Yes (Other)
  Sender: FDA-Public Use
  Company Number: None

PATIENT
  Age: 62 Year
  Sex: Female
  Weight: 133 kg

DRUGS (19)
  1. DOXYCYCLINE [Suspect]
     Active Substance: DOXYCYCLINE
     Indication: Product used for unknown indication
     Dosage: TWO NOW THEN ONE DAILY
     Route: 065
     Dates: start: 20231025
  2. ATORVASTATIN [Concomitant]
     Active Substance: ATORVASTATIN
     Indication: Product used for unknown indication
     Dosage: 1 DOSAGE FORMS DAILY; AT NIGHT, UNIT DOSE: 1DF
     Dates: start: 20230630
  3. CARBIMAZOLE [Concomitant]
     Active Substance: CARBIMAZOLE
     Indication: Product used for unknown indication
     Dosage: .5 DOSAGE FORMS DAILY; ON ALTERNATE DAYS, UNIT DOSE: 1DF
     Dates: start: 20230803
  4. DULOXETINE [Concomitant]
     Active Substance: DULOXETINE
     Indication: Product used for unknown indication
     Dosage: 90 MILLIGRAM DAILY; 60MG MORNING AND 30MG AT TEA TIME
     Dates: start: 20230630
  5. ESTRIOL [Concomitant]
     Active Substance: ESTRIOL
     Indication: Product used for unknown indication
     Dosage: EVERY NIGHT FOR 2 WEEKS THEN TWICE WEEKLY
     Dates: start: 20230630
  6. BECLOMETHASONE\FORMOTEROL [Concomitant]
     Active Substance: BECLOMETHASONE\FORMOTEROL
     Indication: Product used for unknown indication
     Dosage: 4 DOSAGE FORMS DAILY; UNIT DOSE: 2 DF, FREQUENCY: TWICE DAILY
     Route: 055
     Dates: start: 20230630
  7. LANSOPRAZOLE [Concomitant]
     Active Substance: LANSOPRAZOLE
     Indication: Product used for unknown indication
     Dosage: 1 DOSAGE FORMS DAILY; UNIT DOSE: 1DF, FREQUENCY: ONCE DAILY
     Dates: start: 20230630
  8. MEBEVERINE HYDROCHLORIDE [Concomitant]
     Active Substance: MEBEVERINE HYDROCHLORIDE
     Indication: Product used for unknown indication
     Dosage: 2 DOSAGE FORMS DAILY; UNIT DOSE: 1DF, FREQUENCY: TWICE DAILY
     Dates: start: 20230630
  9. MORPHINE SULFATE [Concomitant]
     Active Substance: MORPHINE SULFATE
     Indication: Product used for unknown indication
     Dosage: ONE TO BE TAKEN EACH MORNING AND TWO TO BE TAKE.
     Dates: start: 20230630
  10. MORPHINE SULFATE [Concomitant]
     Active Substance: MORPHINE SULFATE
     Indication: Breakthrough pain
     Dosage: AS DIRECTED, UNIT DOSE: 5ML
     Dates: start: 20221121
  11. ACETAMINOPHEN [Concomitant]
     Active Substance: ACETAMINOPHEN
     Indication: Product used for unknown indication
     Dosage: 8 DOSAGE FORMS DAILY; TWO TO BE TAKEN FOUR TIMES DAILY FOR THE RELIEF
     Dates: start: 20230630
  12. PRED FORTE [Concomitant]
     Active Substance: PREDNISOLONE ACETATE
     Indication: Product used for unknown indication
     Dosage: 3 DOSAGE FORMS DAILY; TO THE LEFT EYE AS ADVISED BY OPHTHALMOLOGY, UNIT DOSE: 1DF, FREQUENCY: THRICE
     Dates: start: 20230911, end: 20231009
  13. PREDNISOLONE [Concomitant]
     Active Substance: PREDNISOLONE
     Indication: Product used for unknown indication
     Dosage: SIX TO BE TAKEN AS A SINGLE DOSE THE SAME TIME, DURATION: 56 DAYS
     Dates: start: 20230815, end: 20231010
  14. PREGABALIN [Concomitant]
     Active Substance: PREGABALIN
     Indication: Product used for unknown indication
     Dosage: 1 DOSAGE FORMS DAILY; AT NIGHT, UNIT DOSE: 1DF
     Dates: start: 20230630
  15. PROPRANOLOL [Concomitant]
     Active Substance: PROPRANOLOL HYDROCHLORIDE
     Indication: Product used for unknown indication
     Dosage: 3 DOSAGE FORMS DAILY; UNIT DOSE: 1DF, FREQUENCY: THRICE DAILY
     Dates: start: 20230825
  16. ALBUTEROL [Concomitant]
     Active Substance: ALBUTEROL
     Indication: Product used for unknown indication
     Dosage: UNIT DOSE: 2DF
     Route: 055
     Dates: start: 20230630
  17. SENNA [Concomitant]
     Active Substance: SENNA LEAF\SENNOSIDES\SENNOSIDES A AND B
     Indication: Constipation
     Dosage: 2 DOSAGE FORMS DAILY; AT NIGHT, UNIT DOSE: 2DF
     Dates: start: 20220523
  18. STEXEROL-D3 [Concomitant]
     Indication: Product used for unknown indication
     Dosage: 1 DOSAGE FORMS DAILY; UNIT DOSE: 1DF, FREQUENCY: ONCE DAILY
     Dates: start: 20230630
  19. WARFARIN SODIUM [Concomitant]
     Active Substance: WARFARIN SODIUM
     Indication: Product used for unknown indication
     Dosage: TAKE DOSE AS DIRECTED IN YOUR YELLOW ANTICOGULA
     Dates: start: 20220523

REACTIONS (2)
  - Swelling face [Recovering/Resolving]
  - Respiration abnormal [Unknown]
